FAERS Safety Report 20979045 (Version 2)
Quarter: 2022Q3

REPORT INFORMATION
  Report Type: Report from Study
  Country: US (occurrence: US)
  Receive Date: 20220619
  Receipt Date: 20220705
  Transmission Date: 20221027
  Serious: Yes (Other)
  Sender: FDA-Public Use
  Company Number: US-ABBVIE-22K-163-4437474-00

PATIENT
  Sex: Female

DRUGS (2)
  1. IMBRUVICA [Suspect]
     Active Substance: IBRUTINIB
     Indication: Chronic myeloid leukaemia
     Route: 048
     Dates: start: 202104
  2. IMBRUVICA [Suspect]
     Active Substance: IBRUTINIB
     Indication: Chronic myeloid leukaemia
     Route: 048
     Dates: start: 20210415

REACTIONS (5)
  - Macular degeneration [Unknown]
  - Intervertebral disc protrusion [Unknown]
  - Weight increased [Unknown]
  - Fall [Unknown]
  - Hypertension [Unknown]
